FAERS Safety Report 8318806-5 (Version None)
Quarter: 2012Q2

REPORT INFORMATION
  Report Type: 
  Country: None (occurrence: None)
  Receive Date: 20120427
  Receipt Date: 20120424
  Transmission Date: 20120825
  Serious: No
  Sender: FDA-Public Use
  Company Number: US-BAYER-2012-041394

PATIENT

DRUGS (1)
  1. ALEVE [Suspect]
     Indication: HEADACHE

REACTIONS (1)
  - SINUS HEADACHE [None]
